FAERS Safety Report 10844779 (Version 1)
Quarter: 2015Q1

REPORT INFORMATION
  Report Type: Spontaneous
  Country: US (occurrence: US)
  Receive Date: 20150220
  Receipt Date: 20150220
  Transmission Date: 20150721
  Serious: Yes (Other)
  Sender: FDA-Public Use
  Company Number: US-SA-2015SA019200

PATIENT
  Age: 56 Year

DRUGS (2)
  1. PLAVIX [Suspect]
     Active Substance: CLOPIDOGREL BISULFATE
     Indication: ACUTE CORONARY SYNDROME
     Route: 065
     Dates: start: 20100725, end: 20100912
  2. ASPIRIN. [Concomitant]
     Active Substance: ASPIRIN
     Dates: start: 20100725, end: 20100912

REACTIONS (2)
  - Gastrointestinal haemorrhage [Unknown]
  - Eye operation [Unknown]

NARRATIVE: CASE EVENT DATE: 20100912
